FAERS Safety Report 22868780 (Version 2)
Quarter: 2023Q4

REPORT INFORMATION
  Report Type: Other
  Country: US (occurrence: None)
  Receive Date: 20230825
  Receipt Date: 20231023
  Transmission Date: 20240110
  Serious: Yes (Life-Threatening, Hospitalization, Other)
  Sender: FDA-Public Use
  Company Number: US-ROCHE-2017265

PATIENT
  Age: 62 Year
  Sex: Male
  Weight: 86.714 kg

DRUGS (3)
  1. RITUXAN [Suspect]
     Active Substance: RITUXIMAB
     Indication: Neuromyelitis optica spectrum disorder
     Route: 065
     Dates: start: 20170413
  2. RITUXAN [Suspect]
     Active Substance: RITUXIMAB
     Indication: Demyelination
  3. RUXIENCE [Suspect]
     Active Substance: RITUXIMAB-PVVR
     Indication: Neuromyelitis optica spectrum disorder
     Dosage: LAST DOSE OF RUXIENCE WAS ON 24/JAN/2023.
     Route: 042
     Dates: start: 2017

REACTIONS (8)
  - Intentional product use issue [Unknown]
  - Pneumonia [Recovered/Resolved]
  - Hypogammaglobulinaemia [Unknown]
  - Asthma [Unknown]
  - Chronic kidney disease [Unknown]
  - Blood immunoglobulin G decreased [Unknown]
  - Snoring [Unknown]
  - Increased tendency to bruise [Unknown]

NARRATIVE: CASE EVENT DATE: 20190101
